FAERS Safety Report 21733413 (Version 1)
Quarter: 2022Q4

REPORT INFORMATION
  Report Type: Spontaneous
  Country: US (occurrence: US)
  Receive Date: 20221215
  Receipt Date: 20221215
  Transmission Date: 20230112
  Serious: No
  Sender: FDA-Public Use
  Company Number: US-BRISTOL-MYERS SQUIBB COMPANY-2022-152578

PATIENT
  Age: 66 Year
  Sex: Female
  Weight: 86.09 kg

DRUGS (1)
  1. REVLIMID [Suspect]
     Active Substance: LENALIDOMIDE
     Indication: Plasma cell myeloma
     Dosage: FREQ: 14D ON 7D OFF
     Route: 048

REACTIONS (3)
  - Hypotension [Recovering/Resolving]
  - Blood potassium decreased [Recovering/Resolving]
  - Off label use [Unknown]
